FAERS Safety Report 4830682-1 (Version None)
Quarter: 2005Q4

REPORT INFORMATION
  Report Type: 
  Country: None (occurrence: None)
  Receive Date: 20051115
  Receipt Date: 20051102
  Transmission Date: 20060501
  Serious: Yes (Other)
  Sender: FDA-Public Use
  Company Number: 2005151391

PATIENT
  Sex: Female

DRUGS (1)
  1. RELPAX [Suspect]
     Indication: ILL-DEFINED DISORDER
     Dosage: 4 MG

REACTIONS (3)
  - DRUG EXPOSURE DURING PREGNANCY [None]
  - INFARCTION [None]
  - UTERINE DISORDER [None]
